FAERS Safety Report 5620466-9 (Version None)
Quarter: 2008Q1

REPORT INFORMATION
  Report Type: 
  Country: None (occurrence: None)
  Receive Date: 20080208
  Receipt Date: 20080204
  Transmission Date: 20080703
  Serious: Yes (Death, Life-Threatening, Hospitalization)
  Sender: FDA-Public Use
  Company Number: US-GILEAD-2007-0013800

PATIENT
  Sex: Male

DRUGS (7)
  1. LETAIRIS [Suspect]
     Indication: PULMONARY HYPERTENSION
     Route: 048
     Dates: start: 20070918, end: 20071003
  2. PREDNISONE TAB [Concomitant]
  3. COZAAR [Concomitant]
  4. INSULIN [Concomitant]
  5. OXYGEN [Concomitant]
     Dosage: 6 LITERS
     Route: 045
  6. LASIX [Concomitant]
  7. LASIX [Concomitant]

REACTIONS (1)
  - PULMONARY HYPERTENSION [None]
